FAERS Safety Report 6261083-X (Version None)
Quarter: 2009Q3

REPORT INFORMATION
  Report Type: 
  Country: None (occurrence: None)
  Receive Date: 20090707
  Receipt Date: 20090624
  Transmission Date: 20100115
  Serious: No
  Sender: FDA-Public Use
  Company Number: 20096995

PATIENT
  Age: 54 Year
  Sex: Female

DRUGS (1)
  1. LIORESAL [Suspect]
     Indication: MUSCLE SPASTICITY
     Dosage: 499.4 MCG, DAILY, INTRATHECAL
     Route: 037

REACTIONS (3)
  - CATHETER RELATED INFECTION [None]
  - DEVICE RELATED INFECTION [None]
  - INCISION SITE OEDEMA [None]
